FAERS Safety Report 19059761 (Version 1)
Quarter: 2021Q1

REPORT INFORMATION
  Report Type: Report from Study
  Country: US (occurrence: US)
  Receive Date: 20210326
  Receipt Date: 20210326
  Transmission Date: 20210420
  Serious: No
  Sender: FDA-Public Use
  Company Number: US-ACADIA PHARMACEUTICALS INC.-ACA-2021-PIM-000883

PATIENT
  Age: 66 Year
  Sex: Male

DRUGS (11)
  1. LEVODOPA [Suspect]
     Active Substance: LEVODOPA
  2. QUETIAPINE. [Concomitant]
     Active Substance: QUETIAPINE
     Dosage: NIGHTTIME, HALF TABLET AT BEDTIME
  3. MYRBETRIQ [Concomitant]
     Active Substance: MIRABEGRON
  4. SERTRALINE [Concomitant]
     Active Substance: SERTRALINE HYDROCHLORIDE
  5. IRON ORAL [Concomitant]
     Active Substance: IRON
  6. SINEMET [Concomitant]
     Active Substance: CARBIDOPA\LEVODOPA
  7. VITAMIN B12 [Concomitant]
     Active Substance: CYANOCOBALAMIN
     Route: 048
  8. TYLENOL [Concomitant]
     Active Substance: ACETAMINOPHEN
  9. NUPLAZID [Suspect]
     Active Substance: PIMAVANSERIN TARTRATE
     Indication: PARKINSON^S DISEASE PSYCHOSIS
     Dosage: 10 MILLIGRAM, QD
     Route: 048
     Dates: start: 20210221, end: 20210224
  10. NUPLAZID [Suspect]
     Active Substance: PIMAVANSERIN TARTRATE
     Indication: HALLUCINATION
  11. CALCIUM + VIT D [Concomitant]
     Active Substance: CALCIUM\VITAMIN D
     Dosage: 500
     Route: 048

REACTIONS (6)
  - Prescribed underdose [Unknown]
  - Confusional state [Recovered/Resolved]
  - Movement disorder [Recovered/Resolved]
  - Hallucination, visual [Unknown]
  - Fatigue [Recovered/Resolved]
  - Hallucination [Recovered/Resolved]

NARRATIVE: CASE EVENT DATE: 20210222
